FAERS Safety Report 20591031 (Version 1)
Quarter: 2022Q1

REPORT INFORMATION
  Report Type: Spontaneous
  Country: IT (occurrence: IT)
  Receive Date: 20220314
  Receipt Date: 20220314
  Transmission Date: 20220423
  Serious: Yes (Other)
  Sender: FDA-Public Use
  Company Number: IT-SAMSUNG BIOEPIS-SB-2022-06035

PATIENT
  Age: 66 Year
  Sex: Female

DRUGS (2)
  1. ETANERCEPT [Suspect]
     Active Substance: ETANERCEPT
     Indication: Rheumatoid arthritis
     Dosage: FOR TWO YEARS
     Route: 058
  2. NIFEDIPINE [Concomitant]
     Active Substance: NIFEDIPINE
     Indication: Hypertension
     Route: 065

REACTIONS (6)
  - Osteonecrosis of jaw [Recovered/Resolved]
  - Tooth extraction [Unknown]
  - Post procedural complication [Recovered/Resolved]
  - Postoperative wound infection [Recovered/Resolved]
  - Impaired healing [Recovered/Resolved]
  - Product use issue [Unknown]
